FAERS Safety Report 23239502 (Version 1)
Quarter: 2023Q4

REPORT INFORMATION
  Report Type: Spontaneous
  Country: CN (occurrence: CN)
  Receive Date: 20231129
  Receipt Date: 20231129
  Transmission Date: 20240109
  Serious: Yes (Other)
  Sender: FDA-Public Use
  Company Number: CN-STRIDES ARCOLAB LIMITED-2023SP017718

PATIENT
  Age: 1 Decade
  Sex: Male

DRUGS (10)
  1. METHOTREXATE [Interacting]
     Active Substance: METHOTREXATE
     Indication: Acute lymphocytic leukaemia
     Dosage: 5 MILLIGRAM/SQ. METER, CYCLICAL (CYCLE 1)
     Route: 065
     Dates: start: 20200515
  2. METHOTREXATE [Interacting]
     Active Substance: METHOTREXATE
     Dosage: 4 GRAM, CYCLICAL (CYCLE 2)
     Route: 065
     Dates: start: 20200530
  3. METHOTREXATE [Interacting]
     Active Substance: METHOTREXATE
     Dosage: 4 GRAM, CYCLICAL (CYCLE 3)
     Route: 065
     Dates: start: 20200615
  4. METHOTREXATE [Interacting]
     Active Substance: METHOTREXATE
     Dosage: UNK, CYCLICAL (CYCLE 4)
     Route: 065
     Dates: start: 20230701
  5. PANTOPRAZOLE [Interacting]
     Active Substance: PANTOPRAZOLE
     Indication: Gastric pH decreased
     Dosage: 20 MG PER DAY, DURING CYCLE 1
     Route: 065
     Dates: start: 20200515
  6. PANTOPRAZOLE [Interacting]
     Active Substance: PANTOPRAZOLE
     Dosage: 20 MG PER DAY DURING CYCLE 2
     Route: 065
     Dates: start: 20200530
  7. PANTOPRAZOLE [Interacting]
     Active Substance: PANTOPRAZOLE
     Dosage: 20 MG PER DAY, DURING CYCLE 3
     Route: 065
     Dates: start: 20200615
  8. LEVOLEUCOVORIN CALCIUM [Concomitant]
     Active Substance: LEVOLEUCOVORIN CALCIUM
     Indication: Product used for unknown indication
     Dosage: 6 MILLIGRAM, 6 H
     Route: 065
     Dates: start: 20200515
  9. LEVOLEUCOVORIN CALCIUM [Concomitant]
     Active Substance: LEVOLEUCOVORIN CALCIUM
     Dosage: 12 MILLIGRAM, 6 H
     Route: 065
     Dates: start: 202006
  10. LEVOLEUCOVORIN CALCIUM [Concomitant]
     Active Substance: LEVOLEUCOVORIN CALCIUM
     Dosage: 6.5 MILLIGRAM, 6H
     Route: 065

REACTIONS (3)
  - Mucosal inflammation [Recovered/Resolved]
  - Drug-induced liver injury [Recovered/Resolved]
  - Drug interaction [Recovered/Resolved]

NARRATIVE: CASE EVENT DATE: 20200101
